FAERS Safety Report 18801106 (Version 1)
Quarter: 2021Q1

REPORT INFORMATION
  Report Type: Spontaneous
  Country: US (occurrence: US)
  Receive Date: 20210128
  Receipt Date: 20210128
  Transmission Date: 20210419
  Serious: No
  Sender: FDA-Public Use
  Company Number: US-BIOMARINAP-US-2020-134038

PATIENT
  Age: 41 Year
  Sex: Female

DRUGS (1)
  1. KUVAN [Suspect]
     Active Substance: SAPROPTERIN DIHYDROCHLORIDE
     Indication: PRODUCT USED FOR UNKNOWN INDICATION
     Dosage: 1900 MILLIGRAM, QD
     Route: 048
     Dates: start: 201807

REACTIONS (1)
  - COVID-19 [Unknown]

NARRATIVE: CASE EVENT DATE: 20201221
